FAERS Safety Report 6713642-5 (Version None)
Quarter: 2010Q2

REPORT INFORMATION
  Report Type: 
  Country: None (occurrence: None)
  Receive Date: 20100506
  Receipt Date: 20100428
  Transmission Date: 20101027
  Serious: Yes (Life-Threatening)
  Sender: FDA-Public Use
  Company Number: B0648355A

PATIENT
  Sex: Male

DRUGS (5)
  1. ARIXTRA [Suspect]
     Indication: THROMBOSIS PROPHYLAXIS
     Dosage: 1.5MG PER DAY
     Route: 058
     Dates: start: 20100304, end: 20100306
  2. SPIRIVA [Concomitant]
     Indication: CHRONIC OBSTRUCTIVE PULMONARY DISEASE
     Route: 055
  3. FERROMIA [Concomitant]
     Route: 048
     Dates: start: 20100302
  4. MOBIC [Concomitant]
     Indication: PAIN
     Route: 048
     Dates: start: 20100304
  5. CALONAL [Concomitant]
     Indication: PAIN
     Dosage: 1200MG PER DAY
     Route: 048

REACTIONS (5)
  - ANAEMIA [None]
  - ATRIAL FIBRILLATION [None]
  - BLOOD PRESSURE DECREASED [None]
  - HYPOVOLAEMIC SHOCK [None]
  - SHOCK HAEMORRHAGIC [None]
